FAERS Safety Report 9708317 (Version 1)
Quarter: 2013Q4

REPORT INFORMATION
  Report Type: Spontaneous
  Country: CN (occurrence: CN)
  Receive Date: 20131125
  Receipt Date: 20131125
  Transmission Date: 20140711
  Serious: Yes (Other)
  Sender: FDA-Public Use
  Company Number: CN-PFIZER INC-2013333082

PATIENT
  Age: 9 Decade
  Sex: Male

DRUGS (3)
  1. TYGACIL [Suspect]
     Indication: LUNG INFECTION
     Dosage: 100 MG, ONCE DAILY
     Route: 041
     Dates: start: 20131111, end: 20131111
  2. TYGACIL [Suspect]
     Dosage: 50 MG, ONCE DAILY
     Route: 041
     Dates: start: 20131112, end: 20131116
  3. SULPERAZON [Concomitant]
     Dosage: UNK
     Dates: start: 2013

REACTIONS (4)
  - Lower gastrointestinal haemorrhage [Recovered/Resolved]
  - Haematochezia [Recovered/Resolved]
  - Blood bilirubin increased [Recovered/Resolved]
  - Fibrin decreased [Recovered/Resolved]
